FAERS Safety Report 6429193-1 (Version None)
Quarter: 2009Q4

REPORT INFORMATION
  Report Type: 
  Country: None (occurrence: None)
  Receive Date: 20091105
  Receipt Date: 20091022
  Transmission Date: 20100525
  Serious: Yes (Hospitalization)
  Sender: FDA-Public Use
  Company Number: NL-GENENTECH-291094

PATIENT
  Sex: Female

DRUGS (16)
  1. RITUXIMAB [Suspect]
     Indication: LYMPHOMA
     Dosage: 25 MG, UNK
     Route: 037
     Dates: start: 20080303, end: 20080311
  2. DEXAMETHASONE [Suspect]
     Indication: LYMPHOMA
     Dosage: 40 MG, UNK
     Route: 048
     Dates: start: 20080307
  3. CISPLATIN [Suspect]
     Indication: LYMPHOMA
     Dosage: 180 MG, UNK
     Route: 042
     Dates: start: 20080307
  4. CYTARABINE [Suspect]
     Indication: LYMPHOMA
     Dosage: 7.4 G, UNK
     Route: 042
     Dates: start: 20080308
  5. METHOTREXATE [Suspect]
     Indication: LYMPHOMA
     Dosage: 3000 MG/M2, UNK
     Route: 042
     Dates: start: 20080509, end: 20080811
  6. BUSULFAN [Suspect]
     Indication: STEM CELL TRANSPLANT
     Dosage: 64 MG, UNK
     Route: 048
     Dates: start: 20080601, end: 20080811
  7. CYCLOPHOSPHAMIDE [Suspect]
     Indication: STEM CELL TRANSPLANT
     Dosage: 1.2 G, UNK
     Route: 042
     Dates: start: 20080605, end: 20080811
  8. NEXIUM [Concomitant]
     Indication: DRUG USE FOR UNKNOWN INDICATION
     Dosage: UNK
     Dates: start: 20080616
  9. CALCIUM PHOSPHATE [Concomitant]
     Indication: DRUG USE FOR UNKNOWN INDICATION
     Dosage: UNK
     Dates: start: 20080618
  10. CIPROXIN [Concomitant]
     Indication: DRUG USE FOR UNKNOWN INDICATION
     Dosage: UNK
     Dates: start: 20080626
  11. TEICOPLANIN [Concomitant]
     Indication: DRUG USE FOR UNKNOWN INDICATION
     Dosage: UNK
     Dates: start: 20080628
  12. KYTRIL [Concomitant]
     Indication: DRUG USE FOR UNKNOWN INDICATION
     Dosage: UNK
     Dates: start: 20080613
  13. VALACYCLOVIR [Concomitant]
     Indication: DRUG USE FOR UNKNOWN INDICATION
  14. OMEPRAZOLE [Concomitant]
     Indication: DRUG USE FOR UNKNOWN INDICATION
  15. CALCIUM CARBONATE [Concomitant]
     Indication: DRUG USE FOR UNKNOWN INDICATION
  16. PREDNISOLONE [Concomitant]
     Indication: DRUG USE FOR UNKNOWN INDICATION

REACTIONS (1)
  - ELECTROLYTE IMBALANCE [None]
